FAERS Safety Report 7315327 (Version 4)
Quarter: 2014Q1

REPORT INFORMATION
  Report Type: Spontaneous
  Country: US (occurrence: US)
  Receive Date: 20100311
  Receipt Date: 20140109
  Transmission Date: 20141002
  Serious: Yes (Other)
  Sender: FDA-Public Use
  Company Number: US-JNJFOC-20100301472

PATIENT
  Age: 59 Year
  Sex: Female
  Weight: 40.37 kg

DRUGS (16)
  1. SANDOZ FENTANYL TRANSDERMAL SYSTEM [Suspect]
     Indication: PAIN
     Route: 062
     Dates: start: 2007, end: 2009
  2. SANDOZ FENTANYL TRANSDERMAL SYSTEM [Suspect]
     Indication: PAIN
     Route: 062
     Dates: start: 2009, end: 201003
  3. SANDOZ FENTANYL TRANSDERMAL SYSTEM [Suspect]
     Indication: BACK PAIN
     Route: 062
     Dates: start: 2009, end: 201003
  4. SANDOZ FENTANYL TRANSDERMAL SYSTEM [Suspect]
     Indication: BACK PAIN
     Route: 062
     Dates: start: 2007, end: 2009
  5. SANDOZ FENTANYL TRANSDERMAL SYSTEM [Suspect]
     Indication: CHEST PAIN
     Route: 062
     Dates: start: 2009, end: 201003
  6. SANDOZ FENTANYL TRANSDERMAL SYSTEM [Suspect]
     Indication: CHEST PAIN
     Route: 062
     Dates: start: 2007, end: 2009
  7. DURAGESIC [Suspect]
     Indication: BACK PAIN
     Route: 062
     Dates: start: 2008, end: 2009
  8. DURAGESIC [Suspect]
     Indication: CHEST PAIN
     Route: 062
     Dates: start: 2008, end: 2009
  9. MORPHINE SULFATE [Suspect]
     Indication: BACK PAIN
     Route: 048
     Dates: start: 200912, end: 200912
  10. MORPHINE SULFATE [Suspect]
     Indication: CHEST PAIN
     Route: 048
     Dates: start: 200912, end: 200912
  11. SANDOZ FENTANYL TRANSDERMAL SYSTEM [Suspect]
     Indication: BACK PAIN
     Route: 062
     Dates: start: 20100313
  12. SANDOZ FENTANYL TRANSDERMAL SYSTEM [Suspect]
     Indication: CHEST PAIN
     Route: 062
     Dates: start: 20100313
  13. SANDOZ FENTANYL TRANSDERMAL SYSTEM [Suspect]
     Indication: PAIN
     Route: 062
     Dates: start: 20100313
  14. ROXICET [Concomitant]
     Indication: BREAKTHROUGH PAIN
     Dosage: 325 MG-5 MG
     Route: 048
     Dates: start: 2003
  15. DIAZEPAM [Concomitant]
     Indication: ANXIETY
     Route: 048
     Dates: start: 1985
  16. DIAZEPAM [Concomitant]
     Indication: NEUROPATHY PERIPHERAL
     Route: 048
     Dates: start: 1985

REACTIONS (19)
  - Vein disorder [Not Recovered/Not Resolved]
  - Spinal pain [Recovered/Resolved]
  - Rectal haemorrhage [Recovered/Resolved]
  - Chest pain [Recovered/Resolved]
  - Product odour abnormal [Unknown]
  - Product quality issue [Unknown]
  - Skin discolouration [Not Recovered/Not Resolved]
  - Burning sensation [Not Recovered/Not Resolved]
  - Therapeutic response decreased [Recovered/Resolved]
  - Diarrhoea [Recovered/Resolved]
  - Eating disorder [Recovered/Resolved]
  - Application site irritation [Recovered/Resolved]
  - Drug ineffective [Recovered/Resolved]
  - Wrong technique in drug usage process [Not Recovered/Not Resolved]
  - Wrong technique in drug usage process [Not Recovered/Not Resolved]
  - Product quality issue [Unknown]
  - Pain [Recovered/Resolved]
  - Malaise [Not Recovered/Not Resolved]
  - Feeling abnormal [Not Recovered/Not Resolved]
